FAERS Safety Report 12226895 (Version 2)
Quarter: 2016Q3

REPORT INFORMATION
  Report Type: Report from Study
  Country: JP (occurrence: JP)
  Receive Date: 20160331
  Receipt Date: 20160908
  Transmission Date: 20161109
  Serious: Yes (Death, Life-Threatening, Hospitalization)
  Sender: FDA-Public Use
  Company Number: JP-AMGEN-JPNCT2016019127

PATIENT
  Age: 67 Year
  Sex: Male

DRUGS (15)
  1. DEXAMETHASONE. [Suspect]
     Active Substance: DEXAMETHASONE
     Indication: PLASMA CELL MYELOMA
     Dosage: 40 MG, PER CHEMO REGIM
     Route: 048
     Dates: start: 20151221, end: 20160204
  2. LANSOPRAZOLE. [Concomitant]
     Active Substance: LANSOPRAZOLE
     Dosage: 15 MG, UNK
     Route: 048
     Dates: start: 20151214, end: 20160213
  3. ESTAZOLAM. [Concomitant]
     Active Substance: ESTAZOLAM
     Dosage: 2 MG, UNK
     Route: 048
     Dates: start: 2013, end: 20160213
  4. AMLODIPINE BESILATE [Concomitant]
     Active Substance: AMLODIPINE BESYLATE
     Dosage: 5 MG, UNK
     Route: 048
     Dates: start: 20151228, end: 20160309
  5. CARFILZOMIB [Suspect]
     Active Substance: CARFILZOMIB
     Indication: PLASMA CELL MYELOMA
     Dosage: 125 MG, PER CHEMO REGIM
     Route: 042
     Dates: start: 20151221, end: 20160204
  6. PABRON [Concomitant]
     Dosage: 1 UNK
     Route: 048
     Dates: start: 20160118, end: 20160118
  7. BACTRAMIN [Concomitant]
     Active Substance: SULFAMETHOXAZOLE\TRIMETHOPRIM
     Dosage: 1 UNK
     Route: 048
     Dates: start: 20141030, end: 20160213
  8. POLAPREZINC [Concomitant]
     Active Substance: POLAPREZINC
     Dosage: 75 MG, UNK
     Route: 048
     Dates: start: 20130410, end: 20160213
  9. KETOPROFEN. [Concomitant]
     Active Substance: KETOPROFEN
     Dosage: 40 MG, UNK
     Route: 061
     Dates: start: 2013, end: 20160213
  10. ZOLPIDEM TARTRATE. [Concomitant]
     Active Substance: ZOLPIDEM TARTRATE
     Dosage: 10 MG, UNK
     Route: 048
     Dates: start: 20130708, end: 20160213
  11. VALSARTAN. [Concomitant]
     Active Substance: VALSARTAN
     Dosage: 82 MG, UNK
     Route: 048
     Dates: start: 2010, end: 20160213
  12. CLOTIAZEPAM [Concomitant]
     Active Substance: CLOTIAZEPAM
     Dosage: 5 MG, UNK
     Route: 048
     Dates: start: 2013, end: 20160213
  13. VALACICLOVIR HYDROCHLORIDE [Concomitant]
     Active Substance: VALACYCLOVIR HYDROCHLORIDE
     Dosage: 500 MG, UNK
     Route: 048
     Dates: start: 20151214, end: 20160213
  14. LOXOPROFEN SODIUM HYDRATE [Concomitant]
     Active Substance: LOXOPROFEN SODIUM DIHYDRATE
     Dosage: 60 MG, UNK
     Route: 048
     Dates: start: 20140417, end: 20160213
  15. POTASSIUM CHLORIDE. [Concomitant]
     Active Substance: POTASSIUM CHLORIDE
     Dosage: 600 MG ORAL, 20 ML IV, UNK
     Dates: start: 20130902, end: 20160225

REACTIONS (3)
  - Pneumonia haemophilus [Not Recovered/Not Resolved]
  - Acute respiratory distress syndrome [Fatal]
  - Septic shock [Not Recovered/Not Resolved]

NARRATIVE: CASE EVENT DATE: 20160213
